FAERS Safety Report 21048189 (Version 1)
Quarter: 2022Q3

REPORT INFORMATION
  Report Type: Spontaneous
  Country: US (occurrence: US)
  Receive Date: 20220706
  Receipt Date: 20220706
  Transmission Date: 20221026
  Serious: Yes (Other)
  Sender: FDA-Public Use
  Company Number: US-BRISTOL-MYERS SQUIBB COMPANY-2022-063829

PATIENT
  Age: 67 Year
  Sex: Male
  Weight: 0 kg

DRUGS (1)
  1. POMALIDOMIDE [Suspect]
     Active Substance: POMALIDOMIDE
     Indication: Product used for unknown indication
     Dosage: DAILY FOR 21 DAYS
     Route: 048
     Dates: start: 20190524

REACTIONS (1)
  - Compression fracture [Unknown]
